FAERS Safety Report 6758047-6 (Version None)
Quarter: 2010Q2

REPORT INFORMATION
  Report Type: 
  Country: None (occurrence: None)
  Receive Date: 20100607
  Receipt Date: 20100528
  Transmission Date: 20101027
  Serious: Yes (Other)
  Sender: FDA-Public Use
  Company Number: JP-ASTRAZENECA-2010SE23866

PATIENT
  Age: 62 Year
  Sex: Male

DRUGS (1)
  1. ECARD COMBINATION [Suspect]
     Indication: HYPERTENSION
     Route: 048
     Dates: start: 20100420, end: 20100521

REACTIONS (1)
  - SUBARACHNOID HAEMORRHAGE [None]
